FAERS Safety Report 24799395 (Version 1)
Quarter: 2025Q1

REPORT INFORMATION
  Report Type: Spontaneous
  Country: GB (occurrence: GB)
  Receive Date: 20250102
  Receipt Date: 20250102
  Transmission Date: 20250408
  Serious: Yes (Death, Congenital Anomaly, Other)
  Sender: ACCORD
  Company Number: None

PATIENT

DRUGS (1)
  1. ONDANSETRON [Suspect]
     Active Substance: ONDANSETRON
     Indication: Product used for unknown indication

REACTIONS (2)
  - Stillbirth [Fatal]
  - Foetal exposure during pregnancy [Unknown]
